FAERS Safety Report 4538249-X (Version None)
Quarter: 2004Q4

REPORT INFORMATION
  Report Type: 
  Country: None (occurrence: None)
  Receive Date: 20041221
  Receipt Date: 20041208
  Transmission Date: 20050328
  Serious: Yes (Hospitalization, Other)
  Sender: FDA-Public Use
  Company Number: 2004107203

PATIENT
  Age: 21 Year
  Sex: Female

DRUGS (6)
  1. AZITHROMYCIN [Suspect]
     Indication: LARYNGOPHARYNGITIS
     Dosage: 500 MG (1 D), ORAL
     Route: 048
     Dates: start: 20041202, end: 20041203
  2. LOXOPROFEN SODIUM (LOXOPROFEN SODIUM) [Concomitant]
  3. TEPRENONE (TEPRENONE) [Concomitant]
  4. TOWATHIEN (CAFFEINE, PARACETAMOL, PROMETHAZINE, SALICYLAMIDE) [Concomitant]
  5. SOLITA T (ELECTROLYTES NOS) [Concomitant]
  6. ALL OTHER THERAPEUTIC PRODUCTS (ALL OTHER THERAPEUTIC PRODUCTS) [Concomitant]

REACTIONS (4)
  - BACTERIA SPUTUM IDENTIFIED [None]
  - STAPHYLOCOCCAL INFECTION [None]
  - STEVENS-JOHNSON SYNDROME [None]
  - TOXIC EPIDERMAL NECROLYSIS [None]
